FAERS Safety Report 9157914 (Version 2)
Quarter: 2013Q2

REPORT INFORMATION
  Report Type: Report from Study
  Country: US (occurrence: US)
  Receive Date: 20130312
  Receipt Date: 20130403
  Transmission Date: 20140414
  Serious: Yes (Hospitalization, Other)
  Sender: FDA-Public Use
  Company Number: US-ABBOTT-13P-163-1059651-00

PATIENT
  Age: 46 Year
  Sex: Male
  Weight: 52.66 kg

DRUGS (2)
  1. HUMIRA [Suspect]
     Indication: CROHN^S DISEASE
     Dosage: 160 MG DAY 1, 80 MG DAY 15
     Dates: start: 20130215
  2. UNKNOWN PAIN MEDICATION [Concomitant]
     Indication: PAIN

REACTIONS (1)
  - Rectal haemorrhage [Recovered/Resolved]
